FAERS Safety Report 4346903-8 (Version None)
Quarter: 2004Q1

REPORT INFORMATION
  Report Type: 
  Country: None (occurrence: None)
  Receive Date: 20040325
  Receipt Date: 20031216
  Transmission Date: 20041129
  Serious: No
  Sender: FDA-Public Use
  Company Number: USA031254794

PATIENT
  Age: 87 Year
  Sex: Female
  Weight: 56 kg

DRUGS (6)
  1. FORTEO [Suspect]
     Indication: FOOT FRACTURE
     Dates: start: 20030801
  2. FORTEO [Suspect]
     Indication: OSTEOPOROSIS
     Dates: start: 20030801
  3. CORGARD [Concomitant]
  4. CALCIUM [Concomitant]
  5. ICAPS [Concomitant]
  6. PHOTOFRIN [Concomitant]

REACTIONS (2)
  - INJECTION SITE HAEMORRHAGE [None]
  - INJECTION SITE PAIN [None]
